FAERS Safety Report 7247059-4 (Version None)
Quarter: 2011Q1

REPORT INFORMATION
  Report Type: 
  Country: None (occurrence: None)
  Receive Date: 20110127
  Receipt Date: 20101213
  Transmission Date: 20110831
  Serious: Yes (Hospitalization, Other)
  Sender: FDA-Public Use
  Company Number: US-BAXTER-2010BH005743

PATIENT
  Age: 39 Year
  Sex: Female
  Weight: 65 kg

DRUGS (132)
  1. HEPARIN SODIUM INJECTION [Suspect]
     Route: 042
     Dates: start: 20071213, end: 20071213
  2. HEPARIN SODIUM INJECTION [Suspect]
     Route: 042
     Dates: start: 20080313, end: 20080318
  3. HEPARIN SODIUM INJECTION [Suspect]
     Route: 010
     Dates: start: 20071213, end: 20071213
  4. HEPARIN SODIUM INJECTION [Suspect]
     Route: 010
     Dates: start: 20071213, end: 20071213
  5. HEPARIN SODIUM INJECTION [Suspect]
     Route: 065
     Dates: start: 20080311, end: 20080311
  6. HEPARIN SODIUM INJECTION [Suspect]
     Route: 065
     Dates: start: 20080311, end: 20080311
  7. HEPARIN SODIUM INJECTION [Suspect]
     Route: 042
     Dates: start: 20080304, end: 20080311
  8. HEPARIN SODIUM INJECTION [Suspect]
     Route: 010
     Dates: start: 20071220, end: 20071220
  9. HEPARIN SODIUM INJECTION [Suspect]
     Route: 042
     Dates: start: 20080303, end: 20080318
  10. HEPARIN SODIUM INJECTION [Suspect]
     Route: 058
     Dates: start: 20080303, end: 20080305
  11. HEPARIN SODIUM INJECTION [Suspect]
     Route: 042
     Dates: start: 20080306, end: 20080306
  12. HEPARIN SODIUM INJECTION [Suspect]
     Route: 042
     Dates: start: 20080312, end: 20080312
  13. HEPARIN SODIUM INJECTION [Suspect]
     Route: 042
     Dates: start: 20080409, end: 20080419
  14. HEPARIN SODIUM INJECTION [Suspect]
     Route: 010
     Dates: start: 20071213, end: 20071213
  15. HEPARIN SODIUM INJECTION [Suspect]
     Route: 042
     Dates: start: 20080313, end: 20080313
  16. HEPARIN SODIUM INJECTION [Suspect]
     Route: 010
     Dates: start: 20080105, end: 20080105
  17. HEPARIN SODIUM INJECTION [Suspect]
     Route: 010
     Dates: start: 20080202, end: 20080202
  18. HEPARIN SODIUM INJECTION [Suspect]
     Route: 010
     Dates: start: 20080219, end: 20080219
  19. HEPARIN SODIUM INJECTION [Suspect]
     Route: 010
     Dates: start: 20071231, end: 20071231
  20. HEPARIN SODIUM INJECTION [Suspect]
     Route: 010
     Dates: start: 20080429, end: 20080429
  21. EPOGEN [Concomitant]
     Indication: PRODUCT USED FOR UNKNOWN INDICATION
     Route: 065
  22. LISINOPRIL [Concomitant]
     Indication: PRODUCT USED FOR UNKNOWN INDICATION
     Route: 065
  23. METOPROLOL [Concomitant]
     Indication: PRODUCT USED FOR UNKNOWN INDICATION
     Route: 065
  24. PEPCID [Concomitant]
     Indication: PRODUCT USED FOR UNKNOWN INDICATION
     Route: 065
  25. NORCO [Concomitant]
     Indication: PRODUCT USED FOR UNKNOWN INDICATION
     Route: 048
  26. ACTIVASE ^ROCHE^ [Concomitant]
     Indication: PRODUCT USED FOR UNKNOWN INDICATION
     Route: 065
  27. HYDROMORPHONE [Concomitant]
     Indication: PRODUCT USED FOR UNKNOWN INDICATION
     Route: 065
  28. CEFAZOLIN [Concomitant]
     Indication: PRODUCT USED FOR UNKNOWN INDICATION
     Route: 065
  29. HEPARIN SODIUM INJECTION [Suspect]
     Route: 058
     Dates: start: 20080303, end: 20080303
  30. HEPARIN SODIUM INJECTION [Suspect]
     Route: 058
     Dates: start: 20080303, end: 20080303
  31. HEPARIN SODIUM INJECTION [Suspect]
     Route: 042
     Dates: start: 20071213, end: 20071213
  32. HEPARIN SODIUM INJECTION [Suspect]
     Route: 010
     Dates: start: 20071224, end: 20071224
  33. HEPARIN SODIUM INJECTION [Suspect]
     Route: 042
     Dates: start: 20080303, end: 20080318
  34. HEPARIN SODIUM INJECTION [Suspect]
     Route: 010
     Dates: start: 20071227, end: 20071227
  35. HEPARIN SODIUM INJECTION [Suspect]
     Route: 042
     Dates: start: 20080307, end: 20080307
  36. HEPARIN SODIUM INJECTION [Suspect]
     Route: 010
     Dates: start: 20080219, end: 20080219
  37. HEPARIN SODIUM INJECTION [Suspect]
     Route: 010
     Dates: start: 20071227, end: 20071227
  38. HEPARIN SODIUM INJECTION [Suspect]
     Route: 010
     Dates: start: 20080202, end: 20080202
  39. HEPARIN SODIUM INJECTION [Suspect]
     Route: 010
     Dates: start: 20080223, end: 20080223
  40. HEPARIN SODIUM INJECTION [Suspect]
     Route: 010
     Dates: start: 20071218, end: 20071218
  41. HEPARIN SODIUM INJECTION [Suspect]
     Route: 010
     Dates: start: 20071218, end: 20071218
  42. HEPARIN SODIUM INJECTION [Suspect]
     Route: 010
     Dates: start: 20080429, end: 20080429
  43. HEPARIN SODIUM 5,000 UNITS IN DEXTROSE 5% [Suspect]
     Indication: PRODUCT USED FOR UNKNOWN INDICATION
     Route: 041
     Dates: start: 20080311, end: 20080311
  44. AVELOX [Concomitant]
     Indication: PRODUCT USED FOR UNKNOWN INDICATION
     Route: 065
  45. HEPARIN SODIUM INJECTION [Suspect]
     Route: 010
     Dates: start: 20071220, end: 20071220
  46. HEPARIN SODIUM INJECTION [Suspect]
     Route: 010
     Dates: start: 20071220, end: 20071220
  47. HEPARIN SODIUM INJECTION [Suspect]
     Route: 058
     Dates: start: 20080303, end: 20080305
  48. HEPARIN SODIUM INJECTION [Suspect]
     Route: 010
     Dates: start: 20071227, end: 20071227
  49. HEPARIN SODIUM INJECTION [Suspect]
     Route: 042
     Dates: start: 20080306, end: 20080306
  50. HEPARIN SODIUM INJECTION [Suspect]
     Route: 010
     Dates: start: 20080105, end: 20080105
  51. HEPARIN SODIUM INJECTION [Suspect]
     Route: 010
     Dates: start: 20071213, end: 20071213
  52. HEPARIN SODIUM INJECTION [Suspect]
     Route: 010
     Dates: start: 20080105, end: 20080105
  53. HEPARIN SODIUM INJECTION [Suspect]
     Route: 010
     Dates: start: 20080105, end: 20080105
  54. HEPARIN SODIUM INJECTION [Suspect]
     Route: 010
     Dates: start: 20080202, end: 20080202
  55. HEPARIN SODIUM INJECTION [Suspect]
     Route: 010
     Dates: start: 20071231, end: 20071231
  56. HEPARIN SODIUM INJECTION [Suspect]
     Route: 010
     Dates: start: 20080429, end: 20080429
  57. PLAVIX [Concomitant]
     Indication: PRODUCT USED FOR UNKNOWN INDICATION
     Route: 065
  58. HEPARIN SODIUM INJECTION [Suspect]
     Indication: HAEMODIALYSIS
     Route: 042
     Dates: start: 20080229, end: 20080229
  59. HEPARIN SODIUM INJECTION [Suspect]
     Route: 010
     Dates: start: 20071213, end: 20071213
  60. HEPARIN SODIUM INJECTION [Suspect]
     Route: 042
     Dates: start: 20080410, end: 20080419
  61. HEPARIN SODIUM INJECTION [Suspect]
     Route: 042
     Dates: start: 20080410, end: 20080419
  62. HEPARIN SODIUM INJECTION [Suspect]
     Route: 010
     Dates: start: 20080219, end: 20080219
  63. HEPARIN SODIUM INJECTION [Suspect]
     Route: 010
     Dates: start: 20080223, end: 20080223
  64. HEPARIN SODIUM INJECTION [Suspect]
     Route: 042
     Dates: start: 20080229, end: 20080229
  65. HEPARIN SODIUM INJECTION [Suspect]
     Route: 010
     Dates: start: 20071220, end: 20071220
  66. HEPARIN SODIUM INJECTION [Suspect]
     Route: 010
     Dates: start: 20071220, end: 20071220
  67. HEPARIN SODIUM INJECTION [Suspect]
     Route: 010
     Dates: start: 20080219, end: 20080219
  68. HEPARIN SODIUM INJECTION [Suspect]
     Route: 010
     Dates: start: 20071231, end: 20071231
  69. LABETALOL HCL [Concomitant]
     Indication: PRODUCT USED FOR UNKNOWN INDICATION
     Route: 065
  70. HEPARIN SODIUM INJECTION [Suspect]
     Route: 042
     Dates: start: 20071213, end: 20071213
  71. HEPARIN SODIUM INJECTION [Suspect]
     Route: 065
     Dates: start: 20080311, end: 20080311
  72. HEPARIN SODIUM INJECTION [Suspect]
     Route: 042
     Dates: start: 20080304, end: 20080311
  73. HEPARIN SODIUM INJECTION [Suspect]
     Route: 042
     Dates: start: 20071213, end: 20071213
  74. HEPARIN SODIUM INJECTION [Suspect]
     Route: 042
     Dates: start: 20071213, end: 20071213
  75. HEPARIN SODIUM INJECTION [Suspect]
     Route: 010
     Dates: start: 20071224, end: 20071224
  76. HEPARIN SODIUM INJECTION [Suspect]
     Route: 010
     Dates: start: 20080202, end: 20080202
  77. HEPARIN SODIUM INJECTION [Suspect]
     Route: 010
     Dates: start: 20080223, end: 20080223
  78. HEPARIN SODIUM INJECTION [Suspect]
     Route: 010
     Dates: start: 20071213, end: 20071213
  79. HEPARIN SODIUM INJECTION [Suspect]
     Route: 042
     Dates: start: 20080313, end: 20080313
  80. HEPARIN SODIUM INJECTION [Suspect]
     Route: 010
     Dates: start: 20071227, end: 20071227
  81. HEPARIN SODIUM INJECTION [Suspect]
     Route: 010
     Dates: start: 20080429, end: 20080429
  82. RENAGEL [Concomitant]
     Indication: PRODUCT USED FOR UNKNOWN INDICATION
     Route: 065
  83. DESMOPRESSIN ACETATE [Concomitant]
     Indication: PRODUCT USED FOR UNKNOWN INDICATION
     Route: 065
  84. NIFEDIPINE [Concomitant]
     Indication: PRODUCT USED FOR UNKNOWN INDICATION
     Route: 065
  85. ESZOPICLONE [Concomitant]
     Indication: PRODUCT USED FOR UNKNOWN INDICATION
     Route: 065
  86. HYDRALAZINE HCL [Concomitant]
     Indication: PRODUCT USED FOR UNKNOWN INDICATION
     Route: 065
  87. HEPARIN SODIUM INJECTION [Suspect]
     Indication: INTRAVENOUS CATHETER MANAGEMENT
     Route: 042
     Dates: start: 20080229, end: 20080229
  88. HEPARIN SODIUM INJECTION [Suspect]
     Route: 042
     Dates: start: 20080313, end: 20080318
  89. HEPARIN SODIUM INJECTION [Suspect]
     Route: 058
     Dates: start: 20080303, end: 20080305
  90. HEPARIN SODIUM INJECTION [Suspect]
     Route: 010
     Dates: start: 20080105, end: 20080105
  91. HEPARIN SODIUM INJECTION [Suspect]
     Route: 010
     Dates: start: 20080202, end: 20080202
  92. HEPARIN SODIUM INJECTION [Suspect]
     Route: 042
     Dates: start: 20080312, end: 20080312
  93. HEPARIN SODIUM INJECTION [Suspect]
     Route: 010
     Dates: start: 20080223, end: 20080223
  94. HEPARIN SODIUM INJECTION [Suspect]
     Route: 042
     Dates: start: 20080229, end: 20080229
  95. HEPARIN SODIUM INJECTION [Suspect]
     Route: 042
     Dates: start: 20080313, end: 20080313
  96. HEPARIN SODIUM INJECTION [Suspect]
     Route: 010
     Dates: start: 20071220, end: 20071220
  97. HEPARIN SODIUM INJECTION [Suspect]
     Route: 010
     Dates: start: 20071227, end: 20071227
  98. HEPARIN SODIUM INJECTION [Suspect]
     Route: 010
     Dates: start: 20080429, end: 20080429
  99. HEPARIN SODIUM INJECTION [Suspect]
     Route: 010
     Dates: start: 20080429, end: 20080429
  100. MIRTAZAPINE [Concomitant]
     Indication: PRODUCT USED FOR UNKNOWN INDICATION
     Route: 065
  101. HEPARIN SODIUM INJECTION [Suspect]
     Route: 065
     Dates: start: 20080304, end: 20080304
  102. HEPARIN SODIUM INJECTION [Suspect]
     Route: 042
     Dates: start: 20080313, end: 20080318
  103. HEPARIN SODIUM INJECTION [Suspect]
     Route: 042
     Dates: start: 20080304, end: 20080311
  104. HEPARIN SODIUM INJECTION [Suspect]
     Route: 010
     Dates: start: 20071224, end: 20071224
  105. HEPARIN SODIUM INJECTION [Suspect]
     Route: 042
     Dates: start: 20080306, end: 20080306
  106. HEPARIN SODIUM INJECTION [Suspect]
     Route: 042
     Dates: start: 20080307, end: 20080307
  107. HEPARIN SODIUM INJECTION [Suspect]
     Route: 042
     Dates: start: 20080312, end: 20080312
  108. HEPARIN SODIUM INJECTION [Suspect]
     Route: 010
     Dates: start: 20080219, end: 20080219
  109. HEPARIN SODIUM INJECTION [Suspect]
     Route: 010
     Dates: start: 20071224, end: 20071224
  110. HEPARIN SODIUM INJECTION [Suspect]
     Route: 010
     Dates: start: 20071224, end: 20071224
  111. HEPARIN SODIUM INJECTION [Suspect]
     Route: 010
     Dates: start: 20071224, end: 20071224
  112. HEPARIN SODIUM INJECTION [Suspect]
     Route: 010
     Dates: start: 20080223, end: 20080223
  113. ASA [Concomitant]
     Indication: PRODUCT USED FOR UNKNOWN INDICATION
     Route: 065
  114. HEPARIN SODIUM INJECTION [Suspect]
     Indication: CATHETER PLACEMENT
     Route: 042
     Dates: start: 20080229, end: 20080229
  115. HEPARIN SODIUM INJECTION [Suspect]
     Route: 058
     Dates: start: 20080303, end: 20080303
  116. HEPARIN SODIUM INJECTION [Suspect]
     Route: 065
     Dates: start: 20080304, end: 20080304
  117. HEPARIN SODIUM INJECTION [Suspect]
     Route: 065
     Dates: start: 20080304, end: 20080304
  118. HEPARIN SODIUM INJECTION [Suspect]
     Route: 042
     Dates: start: 20071213, end: 20071213
  119. HEPARIN SODIUM INJECTION [Suspect]
     Route: 042
     Dates: start: 20080303, end: 20080318
  120. HEPARIN SODIUM INJECTION [Suspect]
     Route: 042
     Dates: start: 20080410, end: 20080419
  121. HEPARIN SODIUM INJECTION [Suspect]
     Route: 010
     Dates: start: 20071227, end: 20071227
  122. HEPARIN SODIUM INJECTION [Suspect]
     Route: 010
     Dates: start: 20080105, end: 20080105
  123. HEPARIN SODIUM INJECTION [Suspect]
     Route: 042
     Dates: start: 20080307, end: 20080307
  124. HEPARIN SODIUM INJECTION [Suspect]
     Route: 010
     Dates: start: 20080202, end: 20080202
  125. HEPARIN SODIUM INJECTION [Suspect]
     Route: 042
     Dates: start: 20080409, end: 20080419
  126. HEPARIN SODIUM INJECTION [Suspect]
     Route: 042
     Dates: start: 20080409, end: 20080419
  127. HEPARIN SODIUM INJECTION [Suspect]
     Route: 042
     Dates: start: 20080229, end: 20080229
  128. HEPARIN SODIUM INJECTION [Suspect]
     Route: 010
     Dates: start: 20080219, end: 20080219
  129. HEPARIN SODIUM INJECTION [Suspect]
     Route: 010
     Dates: start: 20080223, end: 20080223
  130. HEPARIN SODIUM INJECTION [Suspect]
     Route: 010
     Dates: start: 20071218, end: 20071218
  131. SIMVASTATIN [Concomitant]
     Indication: PRODUCT USED FOR UNKNOWN INDICATION
     Route: 065
  132. PAPAVERINE [Concomitant]
     Indication: PRODUCT USED FOR UNKNOWN INDICATION
     Route: 065

REACTIONS (24)
  - AZOTAEMIA [None]
  - VASCULAR GRAFT COMPLICATION [None]
  - WOUND DEHISCENCE [None]
  - DIZZINESS [None]
  - ANXIETY [None]
  - OEDEMA PERIPHERAL [None]
  - HAEMORRHAGIC DIATHESIS [None]
  - HAEMATOMA [None]
  - VASCULAR GRAFT OCCLUSION [None]
  - NECROSIS [None]
  - ANAEMIA [None]
  - FEELING HOT [None]
  - PLATELET DISORDER [None]
  - VASCULITIS [None]
  - DYSPNOEA [None]
  - HYPOVOLAEMIA [None]
  - MOTOR DYSFUNCTION [None]
  - HYPOTENSION [None]
  - VENOUS STENOSIS [None]
  - HYPOAESTHESIA [None]
  - HYPERKALAEMIA [None]
  - HEPARIN-INDUCED THROMBOCYTOPENIA [None]
  - PAIN [None]
  - SCAR [None]
